FAERS Safety Report 17986420 (Version 1)
Quarter: 2020Q3

REPORT INFORMATION
  Report Type: Report from Study
  Country: US (occurrence: US)
  Receive Date: 20200706
  Receipt Date: 20200706
  Transmission Date: 20201103
  Serious: Yes (Other)
  Sender: FDA-Public Use
  Company Number: US-JNJFOC-20181232425

PATIENT

DRUGS (1)
  1. STELARA [Suspect]
     Active Substance: USTEKINUMAB
     Indication: PSORIASIS
     Route: 058

REACTIONS (25)
  - Back pain [Unknown]
  - Nausea [Unknown]
  - Dermatitis contact [Unknown]
  - Nasopharyngitis [Unknown]
  - Hepatitis viral [Unknown]
  - Headache [Unknown]
  - Conjunctivitis [Unknown]
  - Bronchitis [Unknown]
  - Sinusitis [Unknown]
  - Pruritus [Unknown]
  - Myocardial infarction [Unknown]
  - Neoplasm [Unknown]
  - Cough [Unknown]
  - Infection [Unknown]
  - Diarrhoea [Unknown]
  - Arthralgia [Unknown]
  - Cerebrovascular accident [Unknown]
  - Urinary tract infection [Unknown]
  - Hypersensitivity [Unknown]
  - Hypertension [Unknown]
  - Upper respiratory tract infection [Unknown]
  - Neoplasm malignant [Unknown]
  - Infestation [Unknown]
  - Candida infection [Unknown]
  - Oropharyngeal pain [Unknown]
